FAERS Safety Report 15453333 (Version 1)
Quarter: 2018Q4

REPORT INFORMATION
  Report Type: Spontaneous
  Country: US (occurrence: US)
  Receive Date: 20181001
  Receipt Date: 20181001
  Transmission Date: 20190204
  Serious: No
  Sender: FDA-Public Use
  Company Number: US-JNJFOC-20180910668

PATIENT
  Age: 64 Year
  Sex: Female
  Weight: 68.04 kg

DRUGS (2)
  1. CHILDRENS ZYRTEC ALLERGY [Suspect]
     Active Substance: CETIRIZINE HYDROCHLORIDE
     Route: 048
  2. CHILDRENS ZYRTEC ALLERGY [Suspect]
     Active Substance: CETIRIZINE HYDROCHLORIDE
     Indication: MULTIPLE ALLERGIES
     Dosage: 1 DISSOLVED, ONCE.
     Route: 048
     Dates: start: 20180905

REACTIONS (2)
  - Dysgeusia [Not Recovered/Not Resolved]
  - Product taste abnormal [Unknown]

NARRATIVE: CASE EVENT DATE: 20180905
